FAERS Safety Report 25207252 (Version 1)
Quarter: 2025Q2

REPORT INFORMATION
  Report Type: Spontaneous
  Country: MA (occurrence: MA)
  Receive Date: 20250417
  Receipt Date: 20250417
  Transmission Date: 20250717
  Serious: Yes (Other)
  Sender: RANBAXY
  Company Number: MA-SUN PHARMACEUTICAL INDUSTRIES LTD-2025RR-503266

PATIENT
  Age: 54 Year
  Sex: Male

DRUGS (1)
  1. ALLOPURINOL [Suspect]
     Active Substance: ALLOPURINOL
     Indication: Hyperuricaemia
     Route: 065

REACTIONS (1)
  - Drug reaction with eosinophilia and systemic symptoms [Recovered/Resolved]
